FAERS Safety Report 10682520 (Version 1)
Quarter: 2014Q4

REPORT INFORMATION
  Report Type: Spontaneous
  Country: US (occurrence: None)
  Receive Date: 20141229
  Receipt Date: 20141229
  Transmission Date: 20150529
  Serious: Yes (Death)
  Sender: FDA-Public Use
  Company Number: None

PATIENT
  Age: 61 Year
  Sex: Female
  Weight: 54.6 kg

DRUGS (13)
  1. SENOKOT-S [Concomitant]
     Active Substance: DOCUSATE SODIUM\SENNOSIDES
  2. MIRALAX [Concomitant]
     Active Substance: POLYETHYLENE GLYCOL 3350
  3. ATIVAN [Concomitant]
     Active Substance: LORAZEPAM
  4. NIVOLUMAB [Suspect]
     Active Substance: NIVOLUMAB
  5. COMPAZINE [Concomitant]
     Active Substance: PROCHLORPERAZINE MALEATE
  6. TYLENOL [Concomitant]
     Active Substance: ACETAMINOPHEN
  7. MSIR [Concomitant]
     Active Substance: MORPHINE SULFATE
  8. IMODIUM [Concomitant]
     Active Substance: LOPERAMIDE HYDROCHLORIDE
  9. PREVAID [Concomitant]
  10. AZACITIDINE. [Suspect]
     Active Substance: AZACITIDINE
  11. IBUPROFEN. [Concomitant]
     Active Substance: IBUPROFEN
  12. MS CONTIN [Concomitant]
     Active Substance: MORPHINE SULFATE
  13. ZANTAC [Concomitant]
     Active Substance: RANITIDINE HYDROCHLORIDE

REACTIONS (5)
  - Fatigue [None]
  - Drug intolerance [None]
  - Performance status decreased [None]
  - Non-small cell lung cancer [None]
  - Asthenia [None]

NARRATIVE: CASE EVENT DATE: 20140527
